FAERS Safety Report 5369834-3 (Version None)
Quarter: 2007Q2

REPORT INFORMATION
  Report Type: 
  Country: None (occurrence: None)
  Receive Date: 20070621
  Receipt Date: 20070606
  Transmission Date: 20071010
  Serious: Yes (Other)
  Sender: FDA-Public Use
  Company Number: 230107K07BRA

PATIENT
  Sex: Female

DRUGS (3)
  1. REBIF [Suspect]
     Dosage: 44 MCG, 3 IN 1 WEEKS
  2. CLONAZEPAM [Concomitant]
  3. NORTRIPTYLINE HCL [Concomitant]

REACTIONS (1)
  - SUICIDE ATTEMPT [None]
